FAERS Safety Report 6539824-3 (Version None)
Quarter: 2010Q1

REPORT INFORMATION
  Report Type: 
  Country: None (occurrence: None)
  Receive Date: 20100115
  Receipt Date: 20100108
  Transmission Date: 20100710
  Serious: Yes (Life-Threatening, Hospitalization)
  Sender: FDA-Public Use
  Company Number: US-BRACCO-003877

PATIENT
  Sex: Male

DRUGS (16)
  1. COCAINE [Concomitant]
  2. MULTIHANCE [Suspect]
     Indication: PERONEAL NERVE PALSY
     Route: 042
     Dates: start: 20091229, end: 20091229
  3. MULTIHANCE [Suspect]
     Indication: NUCLEAR MAGNETIC RESONANCE IMAGING
     Route: 042
     Dates: start: 20091229, end: 20091229
  4. VENTOLIN [Concomitant]
  5. EPINEPHRINE [Concomitant]
     Route: 042
     Dates: start: 20091229, end: 20091229
  6. ALBUTEROL [Concomitant]
  7. NASONEX [Concomitant]
  8. DUONEB [Concomitant]
  9. MIRALAX [Concomitant]
  10. CELEXA [Concomitant]
  11. PULMICORT [Concomitant]
  12. BENADRYL [Concomitant]
     Route: 042
     Dates: start: 20091229, end: 20091229
  13. RANITIDINE [Concomitant]
     Route: 042
     Dates: start: 20091229, end: 20091229
  14. SOLU-MEDROL [Concomitant]
     Route: 042
     Dates: start: 20091229, end: 20091229
  15. NORCO [Concomitant]
  16. I.V. SOLUTIONS [Concomitant]
     Route: 042
     Dates: start: 20091229, end: 20091229

REACTIONS (1)
  - ANAPHYLACTIC REACTION [None]
